FAERS Safety Report 25150359 (Version 2)
Quarter: 2025Q2

REPORT INFORMATION
  Report Type: Spontaneous
  Country: ES (occurrence: ES)
  Receive Date: 20250402
  Receipt Date: 20250501
  Transmission Date: 20250716
  Serious: Yes (Other)
  Sender: VERTEX
  Company Number: ES-VERTEX PHARMACEUTICALS-2025-004997

PATIENT
  Sex: Female

DRUGS (1)
  1. ELEXACAFTOR\IVACAFTOR\TEZACAFTOR [Suspect]
     Active Substance: ELEXACAFTOR\IVACAFTOR\TEZACAFTOR
     Indication: Cystic fibrosis
     Route: 048
     Dates: start: 20220225

REACTIONS (11)
  - Chalazion [Recovering/Resolving]
  - Hormone level abnormal [Unknown]
  - Fatigue [Unknown]
  - Peripheral swelling [Unknown]
  - Musculoskeletal stiffness [Unknown]
  - Gait disturbance [Unknown]
  - Discomfort [Unknown]
  - Clumsiness [Unknown]
  - Urinary incontinence [Unknown]
  - Blepharitis [Unknown]
  - Abdominal pain lower [Unknown]

NARRATIVE: CASE EVENT DATE: 20220101
